FAERS Safety Report 9528566 (Version 1)
Quarter: 2013Q2

REPORT INFORMATION
  Report Type: Spontaneous
  Country: US (occurrence: None)
  Receive Date: 20130520
  Receipt Date: 20130520
  Transmission Date: 20140414
  Serious: Yes (Death, Hospitalization, Other)
  Sender: FDA-Public Use
  Company Number: 075219

PATIENT
  Age: 35 Year
  Sex: Male

DRUGS (6)
  1. ALPRAZOLAM [Suspect]
     Route: 048
  2. METFORMIN [Suspect]
     Route: 048
  3. IBUPROFEN [Suspect]
     Route: 048
  4. COCAINE [Suspect]
     Route: 048
  5. ETHANOL [Suspect]
     Route: 048
  6. ACETAMINOPHEN W/OXYCODONE [Suspect]

REACTIONS (1)
  - Completed suicide [None]
